FAERS Safety Report 9852495 (Version 2)
Quarter: 2014Q1

REPORT INFORMATION
  Report Type: Spontaneous
  Country: US (occurrence: US)
  Receive Date: 20140129
  Receipt Date: 20140327
  Transmission Date: 20141002
  Serious: Yes (Death)
  Sender: FDA-Public Use
  Company Number: US-PFIZER INC-2014023394

PATIENT
  Age: 53 Year
  Sex: Female

DRUGS (2)
  1. XALKORI [Suspect]
     Indication: LUNG NEOPLASM MALIGNANT
     Dosage: 250 MG, 2X/DAY
     Dates: start: 20130927
  2. XALKORI [Suspect]
     Dosage: 250 MG, 2X/DAY
     Dates: start: 201309, end: 201403

REACTIONS (3)
  - Disease progression [Fatal]
  - Lung neoplasm malignant [Fatal]
  - Diplopia [Unknown]
